FAERS Safety Report 12718645 (Version 1)
Quarter: 2016Q3

REPORT INFORMATION
  Report Type: Spontaneous
  Country: US (occurrence: US)
  Receive Date: 20160906
  Receipt Date: 20160906
  Transmission Date: 20161109
  Serious: No
  Sender: FDA-Public Use
  Company Number: US-TAKEDA-2016TUS015339

PATIENT
  Sex: Female

DRUGS (3)
  1. TRINTELLIX [Suspect]
     Active Substance: VORTIOXETINE HYDROBROMIDE
     Indication: DEPERSONALISATION/DEREALISATION DISORDER
     Dosage: 10 MG, QD
     Route: 048
     Dates: start: 201603, end: 201604
  2. TRINTELLIX [Suspect]
     Active Substance: VORTIOXETINE HYDROBROMIDE
     Indication: DISSOCIATIVE AMNESIA
     Dosage: 5 MG, QD
     Route: 048
     Dates: start: 201602, end: 201603
  3. TRINTELLIX [Suspect]
     Active Substance: VORTIOXETINE HYDROBROMIDE
     Dosage: 20 MG, QD
     Route: 048
     Dates: start: 201604

REACTIONS (2)
  - Drug ineffective for unapproved indication [Unknown]
  - Off label use [Not Recovered/Not Resolved]
